FAERS Safety Report 19207435 (Version 3)
Quarter: 2021Q3

REPORT INFORMATION
  Report Type: Report from Study
  Country: US (occurrence: US)
  Receive Date: 20210503
  Receipt Date: 20210705
  Transmission Date: 20211014
  Serious: No
  Sender: FDA-Public Use
  Company Number: NVSC2021US091567

PATIENT
  Age: 72 Year
  Sex: Female

DRUGS (5)
  1. DRAMAMINE [Suspect]
     Active Substance: DIMENHYDRINATE
     Indication: DIZZINESS
     Dosage: 2 DF
     Route: 065
  2. PEPTO?BISMOL [Suspect]
     Active Substance: BISMUTH SUBSALICYLATE
     Indication: DIZZINESS
     Dosage: 2 DF
     Route: 065
  3. BEOVU [Suspect]
     Active Substance: BROLUCIZUMAB-DBLL
     Indication: NEOVASCULAR AGE-RELATED MACULAR DEGENERATION
     Dosage: UNK
     Route: 047
     Dates: start: 20210413
  4. DRAMAMINE [Suspect]
     Active Substance: DIMENHYDRINATE
     Indication: NAUSEA
  5. PEPTO?BISMOL [Suspect]
     Active Substance: BISMUTH SUBSALICYLATE
     Indication: NAUSEA

REACTIONS (15)
  - Feeling abnormal [Unknown]
  - Nausea [Unknown]
  - Nervousness [Unknown]
  - Skin fissures [Recovering/Resolving]
  - Sinusitis [Unknown]
  - Visual impairment [Unknown]
  - Pain in extremity [Unknown]
  - Eye pain [Recovered/Resolved]
  - Vision blurred [Unknown]
  - Dizziness [Unknown]
  - Peripheral swelling [Recovering/Resolving]
  - Headache [Unknown]
  - Blood pressure increased [Unknown]
  - Pyrexia [Unknown]
  - Gastric disorder [Unknown]

NARRATIVE: CASE EVENT DATE: 20210414
